FAERS Safety Report 5061259-3 (Version None)
Quarter: 2006Q3

REPORT INFORMATION
  Report Type: 
  Country: None (occurrence: None)
  Receive Date: 20060720
  Receipt Date: 20060710
  Transmission Date: 20061208
  Serious: Yes (Hospitalization)
  Sender: FDA-Public Use
  Company Number: 2006081537

PATIENT
  Age: 81 Year
  Sex: Male

DRUGS (8)
  1. ATORVASTATIN CALCIUM [Suspect]
     Indication: DRUG USE FOR UNKNOWN INDICATION
     Dosage: 40 MG (EVERY DAY); ORAL
     Route: 048
     Dates: end: 20060526
  2. PREVISCAN             (FLUINDIONE) [Suspect]
     Indication: DRUG USE FOR UNKNOWN INDICATION
     Dosage: 20 MG (EVERY DAY) ORAL
     Route: 048
     Dates: end: 20060526
  3. DUPHALAC [Concomitant]
  4. BISOPROLOL FUMARATE [Concomitant]
  5. CORDARONE [Concomitant]
  6. LASIX [Concomitant]
  7. ZOPICLONE [Concomitant]
  8. COZAAR [Concomitant]

REACTIONS (4)
  - DRUG INTERACTION [None]
  - FACIAL PALSY [None]
  - HAEMORRHAGIC STROKE [None]
  - INTERNATIONAL NORMALISED RATIO INCREASED [None]
